FAERS Safety Report 5017387-1 (Version None)
Quarter: 2006Q2

REPORT INFORMATION
  Report Type: 
  Country: None (occurrence: None)
  Receive Date: 20060526
  Receipt Date: 20060511
  Transmission Date: 20061013
  Serious: Yes (Other)
  Sender: FDA-Public Use
  Company Number: 2006BH009646

PATIENT

DRUGS (1)
  1. ZOSYN (PIPERACILLIN SODIUM AND TAZOBACTAM SODIUM INJECTION) [Suspect]
     Indication: OTITIS MEDIA

REACTIONS (1)
  - NEUTROPENIA [None]
